FAERS Safety Report 8818915 (Version 2)
Quarter: 2012Q4

REPORT INFORMATION
  Report Type: 
  Country: US (occurrence: US)
  Receive Date: 20121001
  Receipt Date: 20121105
  Transmission Date: 20130627
  Serious: Yes (Other)
  Sender: FDA-Public Use
  Company Number: PHEH2012US018818

PATIENT
  Sex: Female

DRUGS (4)
  1. DIOVAN [Suspect]
     Dosage: 80 mg, UNK
  2. METOPROLOL [Concomitant]
     Dosage: UNK mg, UNK
  3. ATORVASTATIN [Concomitant]
  4. BAYER ASPIRIN [Concomitant]

REACTIONS (3)
  - Metastases to diaphragm [Unknown]
  - Intestinal cyst [Unknown]
  - Syncope [Unknown]
